FAERS Safety Report 7291754-8 (Version None)
Quarter: 2011Q1

REPORT INFORMATION
  Report Type: 
  Country: None (occurrence: None)
  Receive Date: 20110214
  Receipt Date: 20110210
  Transmission Date: 20110831
  Serious: Yes (Hospitalization)
  Sender: FDA-Public Use
  Company Number: DE-SANOFI-AVENTIS-2011SA004669

PATIENT
  Age: 31 Year
  Sex: Male

DRUGS (2)
  1. LANTUS [Suspect]
     Route: 058
     Dates: start: 20101201
  2. NOVORAPID [Concomitant]
     Route: 058

REACTIONS (4)
  - PULMONARY EMBOLISM [None]
  - ARTHRALGIA [None]
  - INFLUENZA [None]
  - DEEP VEIN THROMBOSIS [None]
